FAERS Safety Report 11432677 (Version 8)
Quarter: 2015Q4

REPORT INFORMATION
  Report Type: Spontaneous
  Country: US (occurrence: US)
  Receive Date: 20150828
  Receipt Date: 20151216
  Transmission Date: 20160304
  Serious: Yes (Other)
  Sender: FDA-Public Use
  Company Number: US-PFIZER INC-2015274975

PATIENT
  Age: 75 Year
  Sex: Male
  Weight: 113 kg

DRUGS (34)
  1. GABAPENTIN. [Concomitant]
     Active Substance: GABAPENTIN
     Indication: DIABETES MELLITUS
  2. GLYBURIDE. [Concomitant]
     Active Substance: GLYBURIDE
     Indication: DIABETES MELLITUS
     Dosage: 5 MG, 1X/DAY
     Dates: start: 2005
  3. PEPTO BISMOL /00139305/ [Concomitant]
     Dosage: UNK
  4. GEMFIBROZIL. [Concomitant]
     Active Substance: GEMFIBROZIL
     Indication: BLOOD CHOLESTEROL ABNORMAL
     Dosage: 600 MG, UNK
     Dates: start: 1968
  5. ISOSORBIDE MONONITRATE. [Concomitant]
     Active Substance: ISOSORBIDE MONONITRATE
     Indication: CARDIAC DISORDER
     Dosage: 30 MG, 1X/DAY
     Dates: start: 20141215
  6. SUTENT [Suspect]
     Active Substance: SUNITINIB MALATE
     Indication: RENAL CANCER STAGE IV
     Dosage: 25 MG, ONCE DAILY CYCLIC (28 DAYS ON/14 DAYS OFF)
     Route: 048
     Dates: start: 20150826
  7. SUTENT [Suspect]
     Active Substance: SUNITINIB MALATE
     Dosage: 25 MG, 1X/DAY
     Route: 048
     Dates: start: 20151013
  8. GABAPENTIN. [Concomitant]
     Active Substance: GABAPENTIN
     Indication: PAIN
     Dosage: 900 MG, DAILY
     Dates: start: 2012
  9. DIAZEPAM. [Concomitant]
     Active Substance: DIAZEPAM
     Indication: DIZZINESS
     Dosage: 5 MG, AS NEEDED
     Dates: start: 2012
  10. NORCO [Concomitant]
     Active Substance: ACETAMINOPHEN\HYDROCODONE BITARTRATE
     Indication: PAIN
     Dosage: UNK (HYDROCODONE BITARTRATE 7.5 MG, PARACETAMOL 325MG)
     Dates: start: 201505
  11. SUTENT [Suspect]
     Active Substance: SUNITINIB MALATE
     Indication: RENAL CELL CARCINOMA
     Dosage: 25 MG, ONCE DAILY CYCLIC (28 DAYS ON/14 DAYS OFF)
     Route: 048
     Dates: start: 20150716
  12. ALBUTEROL. [Concomitant]
     Active Substance: ALBUTEROL
     Dosage: UNK, AS NEEDED (INHALER)
  13. AMLODIPINE [Concomitant]
     Active Substance: AMLODIPINE BESYLATE
     Dosage: UNK
  14. ZOLOFT [Concomitant]
     Active Substance: SERTRALINE HYDROCHLORIDE
     Dosage: UNK
  15. REGLAN [Concomitant]
     Active Substance: METOCLOPRAMIDE HYDROCHLORIDE
     Indication: NAUSEA
     Dosage: 10 MG, AS NEEDED
     Dates: start: 2000
  16. TAMSULOSIN [Concomitant]
     Active Substance: TAMSULOSIN
     Indication: DYSURIA
     Dosage: 0.4 MG, 1X/DAY
     Dates: start: 1968
  17. METOPROLOL TARTRATE. [Concomitant]
     Active Substance: METOPROLOL TARTRATE
     Indication: BLOOD PRESSURE ABNORMAL
     Dosage: 25 MG, DAILY
     Dates: start: 20141215
  18. CLINDAMYCIN PHOSPHATE. [Concomitant]
     Active Substance: CLINDAMYCIN PHOSPHATE
     Indication: BLISTER
     Dosage: 2-3 TIMES DAILY, AS NEEDED
     Route: 061
     Dates: start: 20150910
  19. SUTENT [Suspect]
     Active Substance: SUNITINIB MALATE
     Dosage: 25 MG, CYCLIC (28 DAYS ON/14 DAYS OFF)
     Dates: end: 20151201
  20. LOPID [Concomitant]
     Active Substance: GEMFIBROZIL
     Dosage: UNK
  21. HYDROCODONE/APAP [Concomitant]
     Active Substance: ACETAMINOPHEN\HYDROCODONE BITARTRATE
     Dosage: UNK (HYDROCODONE BITARTRATE 7.5 MG+PARACETAMOL 325 MG)
  22. FLOMAX [Concomitant]
     Active Substance: TAMSULOSIN HYDROCHLORIDE
     Dosage: UNK
  23. ISOSORBIDE. [Concomitant]
     Active Substance: ISOSORBIDE
     Dosage: UNK
     Dates: start: 20150831
  24. LOSARTAN. [Concomitant]
     Active Substance: LOSARTAN
     Dosage: UNK
  25. COZAAR [Suspect]
     Active Substance: LOSARTAN POTASSIUM
     Indication: BLOOD PRESSURE ABNORMAL
     Dosage: UNK
  26. VALIUM [Concomitant]
     Active Substance: DIAZEPAM
     Dosage: UNK
  27. NIACIN. [Concomitant]
     Active Substance: NIACIN
     Dosage: UNK
  28. METFORMIN [Concomitant]
     Active Substance: METFORMIN HYDROCHLORIDE
     Indication: BLOOD GLUCOSE ABNORMAL
     Dosage: 25 MG DAILY (1/2 IN THE MORNING AND 1/2 AT NIGHT)
     Dates: start: 20141215
  29. ZOFRAN [Concomitant]
     Active Substance: ONDANSETRON HYDROCHLORIDE
     Indication: FEELING OF RELAXATION
     Dosage: 8 MG, 1X/DAY
     Dates: start: 201501
  30. IMODIUM [Concomitant]
     Active Substance: LOPERAMIDE HYDROCHLORIDE
     Dosage: UNK
  31. SUTENT [Suspect]
     Active Substance: SUNITINIB MALATE
     Dosage: 25 MG, CYCLIC (25MG TABLET ONE DAY, THEN TWO TABLETS THE NEXT DAY, WITH THAT ALTERNATING CYCLE)
     Dates: start: 2015
  32. PLAVIX [Concomitant]
     Active Substance: CLOPIDOGREL BISULFATE
     Indication: CORONARY ARTERIAL STENT INSERTION
     Dosage: 75 MG, 1X/DAY
     Dates: start: 20141215
  33. XGEVA [Concomitant]
     Active Substance: DENOSUMAB
     Indication: BONE DISORDER
     Dosage: 120 MG, UNK
     Dates: start: 20150618
  34. MECLIZINE [Concomitant]
     Active Substance: MECLIZINE\MECLIZINE HYDROCHLORIDE
     Dosage: UNK UNK, AS NEEDED

REACTIONS (32)
  - Diarrhoea [Unknown]
  - Syncope [Unknown]
  - Headache [Unknown]
  - Dizziness [Unknown]
  - Movement disorder [Unknown]
  - Mouth ulceration [Unknown]
  - Insomnia [Unknown]
  - Weight decreased [Unknown]
  - Weight fluctuation [Unknown]
  - Renal cell carcinoma [Not Recovered/Not Resolved]
  - Skin reaction [Recovered/Resolved]
  - Coccydynia [Unknown]
  - Blister [Recovered/Resolved]
  - Limb discomfort [Unknown]
  - Stomatitis [Unknown]
  - Disease progression [Not Recovered/Not Resolved]
  - Skin exfoliation [Unknown]
  - Glossodynia [Not Recovered/Not Resolved]
  - Blood blister [Unknown]
  - Dysgeusia [Unknown]
  - Pelvic pain [Not Recovered/Not Resolved]
  - Sciatica [Unknown]
  - Fatigue [Unknown]
  - Chest pain [Unknown]
  - Tongue blistering [Recovered/Resolved]
  - Hypotension [Unknown]
  - Decreased appetite [Unknown]
  - Skin disorder [Unknown]
  - Blood pressure increased [Unknown]
  - Oral mucosal blistering [Recovered/Resolved]
  - Asthenia [Unknown]
  - Fall [Unknown]

NARRATIVE: CASE EVENT DATE: 2015
